FAERS Safety Report 18692068 (Version 1)
Quarter: 2021Q1

REPORT INFORMATION
  Report Type: Spontaneous
  Country: US (occurrence: US)
  Receive Date: 20210102
  Receipt Date: 20210102
  Transmission Date: 20210419
  Serious: Yes (Other)
  Sender: FDA-Public Use
  Company Number: US-SPECGX-T202002925

PATIENT
  Age: 39 Year
  Sex: Female

DRUGS (3)
  1. FERROUS SULFATE. [Suspect]
     Active Substance: FERROUS SULFATE
     Indication: ANAEMIA
     Dosage: 325 MILLIGRAM, QD
     Route: 048
  2. OXYCODONE [Suspect]
     Active Substance: OXYCODONE
     Indication: PAIN
     Dosage: 300 MILLIGRAM, QD (10 PILLS OF 30MG)
     Route: 065
  3. VITAMIN B12 [Suspect]
     Active Substance: CYANOCOBALAMIN
     Indication: VITAMIN B12 DEFICIENCY
     Dosage: UNK
     Route: 065

REACTIONS (5)
  - Haemorrhoids [Unknown]
  - Gastric disorder [Unknown]
  - Drug dependence [Unknown]
  - Diverticulum [Unknown]
  - Hepatosplenomegaly [Unknown]
